FAERS Safety Report 5820087-9 (Version None)
Quarter: 2008Q3

REPORT INFORMATION
  Report Type: 
  Country: None (occurrence: None)
  Receive Date: 20080717
  Receipt Date: 20080717
  Transmission Date: 20090109
  Serious: Yes (Hospitalization, Disabling)
  Sender: FDA-Public Use
  Company Number: None

PATIENT
  Sex: Female
  Weight: 86.1834 kg

DRUGS (7)
  1. DIOVAN HCT [Suspect]
     Indication: HYPERTENSION
     Dosage: 160MG/25MG ONE TABLET DAILY ORAL
     Route: 048
     Dates: start: 20080623, end: 20080623
  2. METFORMIN HCL [Concomitant]
  3. GLIPIZIDE [Concomitant]
  4. JANUVIA [Concomitant]
  5. ASPIRIN [Concomitant]
  6. SIMVASTATIN [Concomitant]
  7. CENTRUM CARDIO VITAMIN SUPPLEMENT [Concomitant]

REACTIONS (4)
  - CONVULSION [None]
  - DIZZINESS [None]
  - FALL [None]
  - FOOT FRACTURE [None]
